FAERS Safety Report 11854681 (Version 1)
Quarter: 2015Q4

REPORT INFORMATION
  Report Type: Spontaneous
  Country: US (occurrence: US)
  Receive Date: 20151221
  Receipt Date: 20151221
  Transmission Date: 20160305
  Serious: Yes (Other)
  Sender: FDA-Public Use
  Company Number: US-DRREDDYS-USA/USA/15/0054834

PATIENT
  Sex: Male

DRUGS (3)
  1. GLYCOPYRROLATE. [Suspect]
     Active Substance: GLYCOPYRROLATE
     Indication: BREATH HOLDING
     Route: 065
  2. GLYCOPYRROLATE. [Suspect]
     Active Substance: GLYCOPYRROLATE
     Route: 065
  3. GLYCOPYRROLATE. [Suspect]
     Active Substance: GLYCOPYRROLATE
     Dosage: 1 MG EACH MORNING AND AFTERNOON AND 0.5 MG EACH EVENING
     Route: 065

REACTIONS (3)
  - Decreased appetite [Unknown]
  - Cyanosis [Unknown]
  - Constipation [Not Recovered/Not Resolved]
